FAERS Safety Report 9571533 (Version 2)
Quarter: 2013Q4

REPORT INFORMATION
  Report Type: Spontaneous
  Country: FR (occurrence: FR)
  Receive Date: 20131001
  Receipt Date: 20131227
  Transmission Date: 20140711
  Serious: Yes (Other)
  Sender: FDA-Public Use
  Company Number: FR-JNJFOC-20130917671

PATIENT
  Age: 90 Year
  Sex: Male

DRUGS (3)
  1. XARELTO [Suspect]
     Indication: ANGIOPLASTY
     Route: 048
     Dates: start: 20130719, end: 20130920
  2. XARELTO [Suspect]
     Indication: AORTIC STENOSIS
     Route: 048
     Dates: start: 20130719, end: 20130920
  3. XARELTO [Suspect]
     Indication: ARTERIAL DISORDER
     Route: 048
     Dates: start: 20130719, end: 20130920

REACTIONS (6)
  - Thrombocytopenia [Recovered/Resolved]
  - Haemoptysis [Recovered/Resolved]
  - Pyrexia [Recovered/Resolved]
  - Anaemia [Recovered/Resolved]
  - Creatinine renal clearance decreased [Recovered/Resolved]
  - Epistaxis [Recovered/Resolved]
